FAERS Safety Report 16840019 (Version 3)
Quarter: 2020Q1

REPORT INFORMATION
  Report Type: Spontaneous
  Country: US (occurrence: US)
  Receive Date: 20190923
  Receipt Date: 20200210
  Transmission Date: 20200409
  Serious: No
  Sender: FDA-Public Use
  Company Number: US-PFIZER INC-2019407505

PATIENT
  Age: 54 Year
  Sex: Female

DRUGS (2)
  1. XELJANZ [Suspect]
     Active Substance: TOFACITINIB CITRATE
     Dosage: 5 MG, UNK
     Dates: start: 20190806
  2. XELJANZ [Suspect]
     Active Substance: TOFACITINIB CITRATE
     Indication: RHEUMATOID ARTHRITIS
     Dosage: 5 MG, UNK
     Dates: start: 20190804

REACTIONS (6)
  - Fatigue [Unknown]
  - Drug ineffective [Unknown]
  - Headache [Unknown]
  - Cough [Recovered/Resolved]
  - Infection [Recovered/Resolved]
  - Somnolence [Unknown]
